FAERS Safety Report 9719786 (Version 1)
Quarter: 2013Q4

REPORT INFORMATION
  Report Type: Spontaneous
  Country: US (occurrence: US)
  Receive Date: 20131128
  Receipt Date: 20131128
  Transmission Date: 20140711
  Serious: Yes (Other)
  Sender: FDA-Public Use
  Company Number: US-ASTRAZENECA-2013SE85885

PATIENT
  Age: 45 Year
  Sex: Male
  Weight: 90.7 kg

DRUGS (5)
  1. TOPROL XL [Suspect]
     Indication: ATRIAL FIBRILLATION
     Route: 048
     Dates: start: 2011, end: 2012
  2. TOPROL XL [Suspect]
     Indication: HEART RATE INCREASED
     Route: 048
     Dates: start: 2011, end: 2012
  3. TOPROL XL [Suspect]
     Indication: ATRIAL FIBRILLATION
     Route: 048
     Dates: start: 20131111
  4. TOPROL XL [Suspect]
     Indication: HEART RATE INCREASED
     Route: 048
     Dates: start: 20131111
  5. ZANTAC [Concomitant]
     Indication: DYSPEPSIA

REACTIONS (5)
  - Atrial fibrillation [Unknown]
  - Sinus disorder [Unknown]
  - Sinus headache [Unknown]
  - Off label use [Unknown]
  - Drug dose omission [Unknown]
